FAERS Safety Report 4930066-1 (Version None)
Quarter: 2006Q1

REPORT INFORMATION
  Report Type: 
  Country: None (occurrence: None)
  Receive Date: 20060228
  Receipt Date: 20060215
  Transmission Date: 20060701
  Serious: Yes (Disabling)
  Sender: FDA-Public Use
  Company Number: 28498

PATIENT
  Age: 50 Year
  Sex: Female

DRUGS (1)
  1. ALDARA [Suspect]
     Indication: BASAL CELL CARCINOMA
     Dosage: 1 UNSPEC., 5 IN 1 WEEK(S)) TOPICAL
     Route: 061
     Dates: start: 20050425, end: 20050606

REACTIONS (2)
  - COLON ADENOMA [None]
  - HYPERTROPHIC SCAR [None]
